FAERS Safety Report 10355673 (Version 2)
Quarter: 2014Q3

REPORT INFORMATION
  Report Type: Spontaneous
  Country: US (occurrence: US)
  Receive Date: 20140731
  Receipt Date: 20140916
  Transmission Date: 20150326
  Serious: Yes (Other)
  Sender: FDA-Public Use
  Company Number: US-GILEAD-2014-0110764

PATIENT
  Age: 53 Year
  Sex: Male

DRUGS (8)
  1. STRIBILD [Suspect]
     Active Substance: COBICISTAT\ELVITEGRAVIR\EMTRICITABINE\TENOFOVIR DISOPROXIL FUMARATE
     Indication: HIV INFECTION
     Dosage: UNK
     Route: 065
     Dates: start: 201311, end: 201402
  2. VIAGRA [Concomitant]
     Active Substance: SILDENAFIL CITRATE
     Indication: ERECTILE DYSFUNCTION
     Dosage: 1 UNK, UNK
     Route: 048
     Dates: start: 20131119, end: 20140527
  3. TESTOSTERONE. [Concomitant]
     Active Substance: TESTOSTERONE
     Indication: ANDROGEN DEFICIENCY
     Dosage: 200 MG, UNK
     Route: 030
     Dates: start: 20140128, end: 20140527
  4. LOVAZA [Concomitant]
     Active Substance: OMEGA-3-ACID ETHYL ESTERS
     Indication: HYPERTRIGLYCERIDAEMIA
     Dosage: 2 G, BID
     Route: 048
     Dates: start: 20140724
  5. TRICOR                             /00499301/ [Concomitant]
     Indication: HYPERLIPIDAEMIA
     Dosage: 145 MG, UNK
     Route: 048
     Dates: start: 20100428, end: 20140121
  6. EFFEXOR [Concomitant]
     Active Substance: VENLAFAXINE HYDROCHLORIDE
     Indication: DEPRESSION
     Dosage: 1 UNK, UNK
     Route: 048
     Dates: start: 20140627
  7. STRIBILD [Suspect]
     Active Substance: COBICISTAT\ELVITEGRAVIR\EMTRICITABINE\TENOFOVIR DISOPROXIL FUMARATE
     Dosage: UNK
     Dates: start: 201402, end: 20140527
  8. VITAMIN D2 [Concomitant]
     Active Substance: ERGOCALCIFEROL
     Indication: HYPOVITAMINOSIS
     Dosage: 50000 IU, UNK
     Route: 048
     Dates: start: 20111027

REACTIONS (2)
  - Acidosis [Unknown]
  - Renal failure [Recovering/Resolving]
